FAERS Safety Report 7354563-7 (Version None)
Quarter: 2011Q1

REPORT INFORMATION
  Report Type: 
  Country: None (occurrence: None)
  Receive Date: 20110316
  Receipt Date: 20100909
  Transmission Date: 20110831
  Serious: Yes (Hospitalization)
  Sender: FDA-Public Use
  Company Number: US-BAYER-201028291NA

PATIENT
  Sex: Female
  Weight: 51.701 kg

DRUGS (10)
  1. YAZ [Suspect]
     Indication: ORAL CONTRACEPTION
  2. SINGULAIR [Concomitant]
     Indication: ASTHMA
     Dosage: UNK
     Dates: start: 20000101
  3. ASTHMADEX [Concomitant]
     Indication: ASTHMA
     Dosage: UNK
     Dates: start: 20000101
  4. UNCODEABLE ^UNCLASSIFIABLE^ [Concomitant]
     Indication: ASTHMA
     Dosage: UNK
     Dates: start: 20000101
  5. YAZ [Suspect]
     Indication: MENSTRUAL CYCLE MANAGEMENT
     Route: 048
     Dates: start: 20020416, end: 20100501
  6. NEXIUM [Concomitant]
     Dosage: UNK
     Dates: start: 20070101, end: 20080101
  7. YASMIN [Suspect]
     Indication: MENSTRUAL CYCLE MANAGEMENT
     Route: 048
     Dates: start: 20020416, end: 20100501
  8. YASMIN [Suspect]
     Indication: ORAL CONTRACEPTION
  9. ZITHROMAX [Concomitant]
     Dosage: UNK
     Dates: start: 20030514
  10. OCELLA [Suspect]

REACTIONS (4)
  - POST CHOLECYSTECTOMY SYNDROME [None]
  - CHOLELITHIASIS [None]
  - CHOLECYSTITIS CHRONIC [None]
  - PAIN [None]
